FAERS Safety Report 24426576 (Version 1)
Quarter: 2024Q4

REPORT INFORMATION
  Report Type: Spontaneous
  Country: US (occurrence: US)
  Receive Date: 20241011
  Receipt Date: 20241011
  Transmission Date: 20250115
  Serious: Yes (Other)
  Sender: JOHNSON AND JOHNSON
  Company Number: US-JNJFOC-20241019487

PATIENT
  Sex: Female

DRUGS (2)
  1. TECVAYLI [Suspect]
     Active Substance: TECLISTAMAB-CQYV
     Indication: Product used for unknown indication
     Dosage: INJECT 96.3 MG SUBCUTANEOUSLY WEEKLY FOR 3RD DOSE AND BEYOND
     Route: 058
  2. TECVAYLI [Suspect]
     Active Substance: TECLISTAMAB-CQYV
     Dosage: 153/1.7
     Route: 058

REACTIONS (1)
  - Disease progression [Unknown]
